FAERS Safety Report 16540248 (Version 1)
Quarter: 2019Q3

REPORT INFORMATION
  Report Type: Spontaneous
  Country: US (occurrence: US)
  Receive Date: 20190703
  Receipt Date: 20190703
  Transmission Date: 20191004
  Serious: No
  Sender: FDA-Public Use
  Company Number: None

PATIENT
  Age: 51 Year
  Sex: Male
  Weight: 83.25 kg

DRUGS (2)
  1. MIRACLE LEAF CBD - EXTRA STRENGTH, 1200 MG [Suspect]
     Active Substance: CANNABIDIOL\HERBALS
     Indication: ANXIETY
     Dosage: ?          QUANTITY:60 GUMMY BEARS;?
     Route: 048
  2. LOSARTAN. [Concomitant]
     Active Substance: LOSARTAN

REACTIONS (1)
  - Product closure issue [None]

NARRATIVE: CASE EVENT DATE: 20190625
